FAERS Safety Report 25525459 (Version 1)
Quarter: 2025Q3

REPORT INFORMATION
  Report Type: Spontaneous
  Country: CN (occurrence: None)
  Receive Date: 20250707
  Receipt Date: 20250707
  Transmission Date: 20251020
  Serious: Yes (Life-Threatening, Other)
  Sender: HQ SPECIALTY
  Company Number: CN-HQ-20250046

PATIENT
  Age: 46 Year
  Sex: Male

DRUGS (11)
  1. LINEZOLID [Suspect]
     Active Substance: LINEZOLID
     Indication: Tuberculosis
  2. LINEZOLID [Suspect]
     Active Substance: LINEZOLID
     Indication: Tuberculosis
  3. ISONIAZID [Concomitant]
     Active Substance: ISONIAZID
     Indication: Tuberculosis
  4. ISONIAZID [Concomitant]
     Active Substance: ISONIAZID
     Indication: Tuberculosis
  5. ISONIAZID [Concomitant]
     Active Substance: ISONIAZID
     Indication: Tuberculosis
  6. RIFAMPIN [Concomitant]
     Active Substance: RIFAMPIN
     Indication: Tuberculosis
  7. ETHAMBUTOL [Concomitant]
     Active Substance: ETHAMBUTOL HYDROCHLORIDE
     Indication: Tuberculosis
  8. ETHAMBUTOL [Concomitant]
     Active Substance: ETHAMBUTOL HYDROCHLORIDE
     Indication: Tuberculosis
  9. ETHAMBUTOL [Concomitant]
     Active Substance: ETHAMBUTOL HYDROCHLORIDE
     Indication: Tuberculosis
  10. PYRAZINAMIDE [Concomitant]
     Active Substance: PYRAZINAMIDE
     Indication: Tuberculosis
  11. PYRAZINAMIDE [Concomitant]
     Active Substance: PYRAZINAMIDE
     Indication: Tuberculosis

REACTIONS (4)
  - Pyrexia [Recovering/Resolving]
  - Off label use [Unknown]
  - Hepatotoxicity [Recovering/Resolving]
  - Myelosuppression [Recovering/Resolving]
